FAERS Safety Report 9056655 (Version 1)
Quarter: 2013Q1

REPORT INFORMATION
  Report Type: Spontaneous
  Country: NZ (occurrence: NZ)
  Receive Date: 20130204
  Receipt Date: 20130204
  Transmission Date: 20140127
  Serious: Yes (Other)
  Sender: FDA-Public Use
  Company Number: NZ-PFIZER INC-2013037064

PATIENT
  Sex: Male

DRUGS (2)
  1. SUTENT [Suspect]
     Indication: METASTATIC RENAL CELL CARCINOMA
     Dosage: 50 MG, 1X/DAY (4 WEEKS ON / 2 WEEKS OFF)
     Dates: start: 20110708
  2. ZOLEDRONIC ACID [Concomitant]
     Indication: HYPERCALCAEMIA

REACTIONS (3)
  - Vena cava thrombosis [Unknown]
  - Pelvic venous thrombosis [Unknown]
  - Hypercalcaemia [Unknown]
